FAERS Safety Report 24315282 (Version 3)
Quarter: 2024Q4

REPORT INFORMATION
  Report Type: Report from Study
  Country: US (occurrence: US)
  Receive Date: 20240913
  Receipt Date: 20241120
  Transmission Date: 20250115
  Serious: Yes (Hospitalization)
  Sender: AMGEN
  Company Number: US-AMGEN-USASP2024179203

PATIENT
  Age: 8 Month
  Sex: Male

DRUGS (1)
  1. RAVICTI [Suspect]
     Active Substance: GLYCEROL PHENYLBUTYRATE
     Indication: Ornithine transcarbamoylase deficiency
     Dosage: 1 MILLILITER, TID (1.1GM/ML; 1 ML ORAL 3 TIMES A DAY)
     Route: 048
     Dates: start: 202405

REACTIONS (2)
  - Ammonia increased [Unknown]
  - Weight fluctuation [Unknown]
